FAERS Safety Report 25888483 (Version 1)
Quarter: 2025Q4

REPORT INFORMATION
  Report Type: Spontaneous
  Country: US (occurrence: US)
  Receive Date: 20251007
  Receipt Date: 20251007
  Transmission Date: 20260117
  Serious: No
  Sender: BRISTOL-MYERS SQUIBB COMPANY
  Company Number: US-BRISTOL-MYERS SQUIBB COMPANY-2025-134599

PATIENT
  Age: 71 Year
  Sex: Female

DRUGS (3)
  1. REVLIMID [Suspect]
     Active Substance: LENALIDOMIDE
     Indication: Plasma cell myeloma
     Dates: start: 202201
  2. AUSTEDO [Concomitant]
     Active Substance: DEUTETRABENAZINE
     Indication: Product used for unknown indication
  3. INGREZZA [Concomitant]
     Active Substance: VALBENAZINE DITOSYLATE
     Indication: Product used for unknown indication

REACTIONS (1)
  - Pain [Unknown]
